FAERS Safety Report 8780291 (Version 1)
Quarter: 2012Q4

REPORT INFORMATION
  Report Type: Spontaneous
  Country: US (occurrence: None)
  Receive Date: 20120905
  Receipt Date: 20120905
  Transmission Date: 20130627
  Serious: Yes (Other)
  Sender: FDA-Public Use
  Company Number: None

PATIENT
  Age: 29 Year
  Sex: Male
  Weight: 81.65 kg

DRUGS (1)
  1. PROPECIA [Suspect]
     Indication: HAIR LOSS
     Dosage: 7 per day

REACTIONS (4)
  - Premature ejaculation [None]
  - Sperm concentration decreased [None]
  - Erectile dysfunction [None]
  - Libido decreased [None]
